FAERS Safety Report 19861823 (Version 1)
Quarter: 2021Q3

REPORT INFORMATION
  Report Type: Spontaneous
  Country: US (occurrence: US)
  Receive Date: 20210921
  Receipt Date: 20210921
  Transmission Date: 20211014
  Serious: Yes (Disabling)
  Sender: FDA-Public Use
  Company Number: None

PATIENT
  Age: 57 Year
  Sex: Female
  Weight: 56.7 kg

DRUGS (13)
  1. TESTOSTERONE. [Concomitant]
     Active Substance: TESTOSTERONE
  2. DHEA [Concomitant]
     Active Substance: PRASTERONE
  3. NP THYROID / ARMOUR [Concomitant]
  4. BIOTE OMEGA [Concomitant]
  5. OPTIFERIN C [Concomitant]
  6. LEBOTHYROXINE [Concomitant]
  7. PROGESTERONE. [Concomitant]
     Active Substance: PROGESTERONE
  8. MAGNESIUM [Concomitant]
     Active Substance: MAGNESIUM
  9. ARMOUR THYROID [Suspect]
     Active Substance: THYROID, PORCINE
     Indication: POST PROCEDURAL HYPOTHYROIDISM
     Dosage: ?          QUANTITY:2 TABLET(S);?
     Route: 048
     Dates: start: 20210901
  10. BIOTE ADK10 [Concomitant]
  11. VITAMIN C [Concomitant]
     Active Substance: ASCORBIC ACID
  12. ESTRADIOL. [Concomitant]
     Active Substance: ESTRADIOL
  13. BIOTE DIM [Concomitant]

REACTIONS (6)
  - Weight increased [None]
  - Impaired work ability [None]
  - Depression [None]
  - Fatigue [None]
  - Manufacturing issue [None]
  - Drug ineffective [None]

NARRATIVE: CASE EVENT DATE: 20210901
